FAERS Safety Report 4998476-4 (Version None)
Quarter: 2006Q2

REPORT INFORMATION
  Report Type: 
  Country: None (occurrence: None)
  Receive Date: 20060508
  Receipt Date: 20060420
  Transmission Date: 20061013
  Serious: Yes (Other)
  Sender: FDA-Public Use
  Company Number: ACO-0230-2006

PATIENT
  Age: 15 Year
  Sex: Female

DRUGS (1)
  1. TERNELIN [Suspect]
     Indication: MUSCLE ATROPHY
     Dosage: DF PO
     Route: 048

REACTIONS (2)
  - GRANULOCYTOPENIA [None]
  - WHITE BLOOD CELL COUNT DECREASED [None]
